FAERS Safety Report 11519328 (Version 1)
Quarter: 2015Q3

REPORT INFORMATION
  Report Type: Spontaneous
  Country: US (occurrence: US)
  Receive Date: 20150918
  Receipt Date: 20150918
  Transmission Date: 20151125
  Serious: No
  Sender: FDA-Public Use
  Company Number: US-ASTRAZENECA-2015SE85454

PATIENT
  Sex: Female
  Weight: 107 kg

DRUGS (3)
  1. MEDICATION FOR BLOOD PRESSURE [Concomitant]
     Indication: BLOOD PRESSURE ABNORMAL
  2. BYDUREON [Suspect]
     Active Substance: EXENATIDE
     Indication: TYPE 2 DIABETES MELLITUS
     Route: 058
  3. MEDICATION FOR CHOLESTEROL [Concomitant]
     Indication: BLOOD CHOLESTEROL ABNORMAL

REACTIONS (6)
  - Nodule [Not Recovered/Not Resolved]
  - Pruritus generalised [Recovered/Resolved]
  - Injection site pain [Recovered/Resolved]
  - Injection site pruritus [Recovered/Resolved]
  - Injection site mass [Not Recovered/Not Resolved]
  - Injection site erythema [Recovered/Resolved]
